FAERS Safety Report 7941492-0 (Version None)
Quarter: 2011Q4

REPORT INFORMATION
  Report Type: 
  Country: None (occurrence: None)
  Receive Date: 20111128
  Receipt Date: 20111117
  Transmission Date: 20120403
  Serious: Yes (Death)
  Sender: FDA-Public Use
  Company Number: JP-ASTELLAS-2011JP007675

PATIENT
  Sex: Male

DRUGS (14)
  1. FUNGUARD [Suspect]
     Dosage: 300 MG, UID/QD
     Route: 042
     Dates: start: 20090617, end: 20090621
  2. FUNGUARD [Suspect]
     Dosage: 150 MG, UID/QD
     Route: 042
     Dates: start: 20090609, end: 20090616
  3. DORIPENEM MONOHYDRATE [Suspect]
     Dosage: 0.25 G, BID
     Route: 042
     Dates: start: 20090618
  4. AMPICILLIN SODIUM/SULBACTAM SODIUM [Suspect]
     Dosage: 3 G, BID
     Route: 042
     Dates: start: 20090531, end: 20090609
  5. MEROPENEM [Suspect]
     Dosage: 0.5 G, BID
     Route: 042
     Dates: start: 20090605, end: 20090617
  6. PENTAMIDINE ISETHIONATE [Concomitant]
     Dosage: 3 MG/KG, UNKNOWN/D
     Route: 041
  7. PENTAMIDINE ISETHIONATE [Concomitant]
     Dosage: 3 MG/KG, UNKNOWN/D
     Route: 041
  8. METHYLPREDNISOLONE [Concomitant]
     Dosage: UNK
     Route: 065
  9. PREDNISOLONE [Concomitant]
     Dosage: 30 MG, UNKNOWN/D
     Route: 048
  10. PREDNISOLONE [Concomitant]
     Dosage: 25 MG, UNKNOWN/D
     Route: 048
  11. PREDNISOLONE [Concomitant]
     Dosage: 40 MG, UNKNOWN/D
     Route: 048
  12. SULFAMETHOXAZOLE AND TRIMETHOPRIM [Concomitant]
     Route: 065
  13. CIPROFLOXACIN HCL [Suspect]
     Dosage: 300 MG, BID
     Route: 042
     Dates: start: 20090605, end: 20090618
  14. FLUCONAZOLE [Suspect]
     Dosage: 200 MG, UID/QD
     Route: 042
     Dates: start: 20090619, end: 20090621

REACTIONS (1)
  - TRICHOSPORON INFECTION [None]
